FAERS Safety Report 7145304-7 (Version None)
Quarter: 2010Q4

REPORT INFORMATION
  Report Type: 
  Country: None (occurrence: None)
  Receive Date: 20101208
  Receipt Date: 20101201
  Transmission Date: 20110411
  Serious: Yes (Other)
  Sender: FDA-Public Use
  Company Number: JP-PFIZER INC-2010160944

PATIENT
  Age: 67 Year
  Sex: Female

DRUGS (8)
  1. LYRICA [Suspect]
     Indication: NEURALGIA
     Dosage: 75 MG, SINGLE
     Route: 048
     Dates: start: 20101129, end: 20101129
  2. YODEL [Concomitant]
     Indication: CONSTIPATION
     Dosage: 80 MG/DAY
     Route: 048
     Dates: start: 20100406
  3. DEPAS [Concomitant]
     Indication: ANXIETY DISORDER
     Dosage: 0.5 MG/DAY
     Route: 048
     Dates: start: 20100406
  4. AMARYL [Concomitant]
     Indication: DIABETES MELLITUS
     Dosage: 1 MG/DAY
     Route: 048
     Dates: start: 20100622
  5. NORVASC [Concomitant]
     Indication: HYPERTENSION
     Dosage: 5 MG/DAY
     Route: 048
     Dates: start: 20100419
  6. LIPITOR [Concomitant]
     Indication: HYPERCHOLESTEROLAEMIA
     Dosage: 5 MG/DAY
     Route: 048
     Dates: start: 20100406
  7. ASPIRIN [Concomitant]
     Indication: CEREBRAL INFARCTION
     Dosage: 100 MG/DAY
     Route: 048
     Dates: start: 20100406
  8. SITAGLIPTIN PHOSPHATE [Concomitant]
     Indication: DIABETES MELLITUS
     Dosage: 50 MG/DAY
     Route: 048
     Dates: start: 20100406

REACTIONS (2)
  - DIZZINESS [None]
  - HYPERTENSION [None]
